FAERS Safety Report 17883293 (Version 1)
Quarter: 2020Q2

REPORT INFORMATION
  Report Type: Spontaneous
  Country: US (occurrence: US)
  Receive Date: 20200611
  Receipt Date: 20200611
  Transmission Date: 20200714
  Serious: Yes (Hospitalization)
  Sender: FDA-Public Use
  Company Number: US-EMCURE PHARMACEUTICALS LTD-2020-EPL-000719

PATIENT
  Age: 11 Year
  Sex: Female
  Weight: 30 kg

DRUGS (15)
  1. DIPHENHYDRAMINE HYDROCHLORIDE. [Suspect]
     Active Substance: DIPHENHYDRAMINE HYDROCHLORIDE
     Indication: PRODUCT USED FOR UNKNOWN INDICATION
     Dosage: UNK
  2. CLONAZEPAM. [Suspect]
     Active Substance: CLONAZEPAM
     Indication: PARTIAL SEIZURES
     Dosage: 0.02 MILLIGRAM PER KILOGRAM PER DAY, DIVIDED TID
  3. LORAZEPAM. [Suspect]
     Active Substance: LORAZEPAM
     Indication: PARTIAL SEIZURES
     Dosage: 1 MILLIGRAM, QD (AT BEDTIME) (0.03 MG/KG/DOSE)
     Route: 048
  4. ONFI [Suspect]
     Active Substance: CLOBAZAM
     Indication: PARTIAL SEIZURES
     Dosage: 5 MILLIGRAM, BID (0.3 MG/KG/DAY)
     Route: 048
  5. LORATADINE. [Suspect]
     Active Substance: LORATADINE
     Indication: PRODUCT USED FOR UNKNOWN INDICATION
     Dosage: 10 MILLIGRAM PER DAY
     Route: 048
  6. LORAZEPAM. [Suspect]
     Active Substance: LORAZEPAM
     Indication: ANXIETY
     Dosage: 2 MILLIGRAM, (0.07 MG/KG), EVERY 4-6 HOURS, AS NECESSARY
     Route: 048
  7. LEVETIRACETAM. [Concomitant]
     Active Substance: LEVETIRACETAM
     Indication: PARTIAL SEIZURES
     Dosage: 1200 MILLIGRAM, BID (80 MG/KG/DAY)
  8. GLYCOPYRROLATE. [Concomitant]
     Active Substance: GLYCOPYRROLATE
     Dosage: 1 MG IN THE MORNING, 1.5 MG AT NOON, AND 1 MG AT BEDTIME, AS NECESSARY
     Route: 048
  9. MELATONIN [Suspect]
     Active Substance: MELATONIN
     Indication: PRODUCT USED FOR UNKNOWN INDICATION
     Dosage: 3 MILLIGRAM, QD (AT BEDTIME)
     Route: 048
  10. ONFI [Suspect]
     Active Substance: CLOBAZAM
     Dosage: 7.5 MILLIGRAM, BID (0.5 MG/KG/DAY)
     Route: 048
  11. VALPROIC ACID. [Suspect]
     Active Substance: VALPROIC ACID
     Indication: PARTIAL SEIZURES
     Dosage: 20 MILLIGRAM PER KILOGRAM
     Route: 048
  12. VALPROIC ACID. [Suspect]
     Active Substance: VALPROIC ACID
     Dosage: 200 MILLIGRAM, TID (20 MG/KG/DAY)
     Route: 048
  13. BACLOFEN. [Concomitant]
     Active Substance: BACLOFEN
     Indication: QUADRIPLEGIA
     Dosage: 1051 MICROGRAM PER DAY
  14. CLONIDINE. [Suspect]
     Active Substance: CLONIDINE
     Indication: PRODUCT USED FOR UNKNOWN INDICATION
     Dosage: 0.2 MILLIGRAM, QD (AT BEDTIME)
  15. ONFI [Suspect]
     Active Substance: CLOBAZAM
     Dosage: 10 MILLIGRAM, BID (0.7 MG/KG/DAY)
     Route: 048

REACTIONS (1)
  - Hypersomnia [Recovered/Resolved]
